FAERS Safety Report 7717677-5 (Version None)
Quarter: 2011Q3

REPORT INFORMATION
  Report Type: 
  Country: None (occurrence: None)
  Receive Date: 20110830
  Receipt Date: 20110830
  Transmission Date: 20111222
  Serious: Yes (Other)
  Sender: FDA-Public Use
  Company Number: None

PATIENT
  Age: 59 Year
  Sex: Male
  Weight: 83.914 kg

DRUGS (1)
  1. AVELOX [Suspect]
     Indication: RESPIRATORY DISORDER
     Dosage: 400 MG
     Route: 048
     Dates: start: 20110503, end: 20110509

REACTIONS (8)
  - CONDITION AGGRAVATED [None]
  - DYSSTASIA [None]
  - MUSCLE SPASMS [None]
  - GOUT [None]
  - TREMOR [None]
  - TENDONITIS [None]
  - GAIT DISTURBANCE [None]
  - PAIN IN EXTREMITY [None]
